FAERS Safety Report 10149685 (Version 2)
Quarter: 2014Q2

REPORT INFORMATION
  Report Type: Spontaneous
  Country: BE (occurrence: BE)
  Receive Date: 20140502
  Receipt Date: 20140512
  Transmission Date: 20141212
  Serious: Yes (Hospitalization, Other)
  Sender: FDA-Public Use
  Company Number: BE-JNJFOC-20140420703

PATIENT
  Sex: Female

DRUGS (14)
  1. XARELTO [Suspect]
     Indication: PRODUCT USED FOR UNKNOWN INDICATION
     Route: 048
     Dates: start: 20140325
  2. ASPIRIN [Concomitant]
     Indication: PRODUCT USED FOR UNKNOWN INDICATION
     Route: 065
  3. PLAVIX [Concomitant]
     Indication: PRODUCT USED FOR UNKNOWN INDICATION
     Route: 065
  4. SOTALEX [Concomitant]
     Route: 065
  5. ZOPICLONE [Concomitant]
     Route: 065
  6. FLUOXETINE [Concomitant]
     Route: 065
  7. ZESTRIL [Concomitant]
     Route: 065
  8. D-VITAL CALCIUM [Concomitant]
     Route: 065
  9. LASIX [Concomitant]
     Route: 065
  10. MOVICOL [Concomitant]
     Route: 065
  11. ASAFLOW [Concomitant]
     Route: 065
  12. PRAVASIN [Concomitant]
     Route: 065
  13. FERROUS GLUCONATE [Concomitant]
     Route: 065
  14. L-THYROXIN [Concomitant]
     Route: 065

REACTIONS (9)
  - Anaemia [Unknown]
  - Acute coronary syndrome [Unknown]
  - Renal failure acute [Unknown]
  - Cardiac failure [Unknown]
  - Cardiac failure [Unknown]
  - Epistaxis [Unknown]
  - Acute pulmonary oedema [Unknown]
  - Hallucination, visual [Unknown]
  - Contusion [Unknown]
